FAERS Safety Report 16018402 (Version 1)
Quarter: 2019Q1

REPORT INFORMATION
  Report Type: Spontaneous
  Country: US (occurrence: US)
  Receive Date: 20190131
  Receipt Date: 20190131
  Transmission Date: 20190418
  Serious: No
  Sender: FDA-Public Use
  Company Number: None

PATIENT
  Age: 31 Year
  Sex: Female

DRUGS (1)
  1. TACROLIMUS CAP 0.5MG [Suspect]
     Active Substance: TACROLIMUS
     Dosage: ?          OTHER DOSE:0.5MG;?
     Route: 048

REACTIONS (1)
  - Off label use [None]

NARRATIVE: CASE EVENT DATE: 20190131
